FAERS Safety Report 5034283-4 (Version None)
Quarter: 2006Q2

REPORT INFORMATION
  Report Type: 
  Country: None (occurrence: None)
  Receive Date: 20060621
  Receipt Date: 20060606
  Transmission Date: 20061013
  Serious: Yes (Other)
  Sender: FDA-Public Use
  Company Number: 198017

PATIENT
  Age: 53 Year
  Sex: Female
  Weight: 51.7101 kg

DRUGS (11)
  1. AVONEX [Suspect]
     Indication: MULTIPLE SCLEROSIS
     Dosage: 30 UG;QW; IM
     Route: 030
     Dates: start: 20020927, end: 20030901
  2. AVONEX [Suspect]
     Indication: MULTIPLE SCLEROSIS
     Dosage: 30 UG ;QW;  IM
     Route: 030
     Dates: start: 20030901, end: 20040517
  3. MAXAIR [Concomitant]
  4. ADVAIR DISKUS 100/50 [Concomitant]
  5. REMERON [Concomitant]
  6. KLONOPIN [Concomitant]
  7. MULTI-VITAMIN [Concomitant]
  8. VITAMIN B COMPLEX CAP [Concomitant]
  9. ALLEGRA [Concomitant]
  10. VALTREX [Concomitant]
  11. NASONEX [Concomitant]

REACTIONS (27)
  - ANAEMIA [None]
  - ANOREXIA [None]
  - ANXIETY [None]
  - AORTIC VALVE DISEASE [None]
  - CARDIAC VALVE DISEASE [None]
  - CARDIAC VENTRICULAR DISORDER [None]
  - CHEST DISCOMFORT [None]
  - COUGH [None]
  - DEPRESSION [None]
  - DYSPNOEA EXERTIONAL [None]
  - ENDOCARDITIS NONINFECTIVE [None]
  - EXERCISE TOLERANCE DECREASED [None]
  - LUNG INFILTRATION [None]
  - MALAISE [None]
  - MITRAL VALVE DISEASE [None]
  - MUSCLE DISORDER [None]
  - PALPITATIONS [None]
  - PAPILLOMA [None]
  - PECTUS EXCAVATUM [None]
  - PERICARDIAL EFFUSION [None]
  - PULMONARY CALCIFICATION [None]
  - PULMONARY SARCOIDOSIS [None]
  - PYREXIA [None]
  - RED BLOOD CELL SEDIMENTATION RATE INCREASED [None]
  - SYSTEMIC INFLAMMATORY RESPONSE SYNDROME [None]
  - WEIGHT DECREASED [None]
  - WHEEZING [None]
